FAERS Safety Report 8736094 (Version 2)
Quarter: 2012Q4

REPORT INFORMATION
  Report Type: Report from Study
  Country: US (occurrence: US)
  Receive Date: 20120822
  Receipt Date: 20120914
  Transmission Date: 20130627
  Serious: Yes (Death)
  Sender: FDA-Public Use
  Company Number: US-ASTELLAS-2012US007085

PATIENT
  Sex: Female

DRUGS (13)
  1. ERLOTINIB TABLET [Suspect]
     Indication: LUNG CARCINOMA CELL TYPE UNSPECIFIED STAGE 0
     Dosage: 150 mg, UID/QD
     Route: 048
     Dates: start: 20120511
  2. TESSALON [Concomitant]
     Indication: PRODUCT USED FOR UNKNOWN INDICATION
     Dosage: 200 mg, Unknown/D
     Route: 048
     Dates: start: 20120418, end: 20120521
  3. VITAMIN D3 [Concomitant]
     Indication: PRODUCT USED FOR UNKNOWN INDICATION
     Dosage: 2 mg, Unknown/D
     Route: 048
     Dates: start: 20000101, end: 20120521
  4. CALCIUM [Concomitant]
     Indication: PRODUCT USED FOR UNKNOWN INDICATION
     Dosage: 600 DF, Unknown/D
     Route: 048
     Dates: start: 20000101, end: 20120521
  5. ATIVAN [Concomitant]
     Indication: PRODUCT USED FOR UNKNOWN INDICATION
     Dosage: 1 mg, Unknown/D
     Route: 048
     Dates: start: 20110701, end: 20120521
  6. MULTIVITAMINS [Concomitant]
     Indication: PRODUCT USED FOR UNKNOWN INDICATION
     Dosage: UNK
     Route: 048
     Dates: start: 20000101, end: 20120521
  7. DECADRON /00016001/ [Concomitant]
     Indication: PRODUCT USED FOR UNKNOWN INDICATION
     Dosage: 4 mg, Unknown/D
     Route: 048
     Dates: start: 20110727
  8. DECADRON /00016001/ [Concomitant]
     Dosage: 4 mg, Unknown/D
     Route: 048
     Dates: start: 20120410, end: 20120521
  9. FOLIC ACID [Concomitant]
     Indication: PRODUCT USED FOR UNKNOWN INDICATION
     Dosage: 1 mg, Unknown/D
     Route: 048
     Dates: start: 20111110, end: 20120521
  10. FLAXSEED OIL [Concomitant]
     Indication: PRODUCT USED FOR UNKNOWN INDICATION
     Dosage: 1000 mg, Unknown/D
     Route: 048
     Dates: start: 20000101, end: 20120521
  11. VITAMIN E                          /00110501/ [Concomitant]
     Indication: PRODUCT USED FOR UNKNOWN INDICATION
     Dosage: 1000000 IU/kg, Unknown/D
     Route: 048
     Dates: start: 20000101, end: 20120521
  12. MSIR [Concomitant]
     Indication: PRODUCT USED FOR UNKNOWN INDICATION
     Dosage: 15 mg, Unknown/D
     Route: 048
     Dates: start: 20120509, end: 20120521
  13. DURAGESIC /00174601/ [Concomitant]
     Indication: PRODUCT USED FOR UNKNOWN INDICATION
     Dosage: 25 ug, Unknown/D
     Route: 062
     Dates: start: 20120509, end: 20120521

REACTIONS (1)
  - Malignant neoplasm progression [Fatal]
